FAERS Safety Report 16262242 (Version 10)
Quarter: 2021Q1

REPORT INFORMATION
  Report Type: Report from Study
  Country: US (occurrence: US)
  Receive Date: 20190501
  Receipt Date: 20210217
  Transmission Date: 20210419
  Serious: Yes (Other)
  Sender: FDA-Public Use
  Company Number: US-MALLINCKRODT-T201901681

PATIENT
  Sex: Female
  Weight: 150 kg

DRUGS (24)
  1. REPOSITORY CORTICOTROPIN INJECTION [Suspect]
     Active Substance: CORTICOTROPIN
     Dosage: 6 UNITS ONCE A MONTH
     Route: 058
     Dates: start: 202010, end: 2020
  2. DOXAZOSIN MESYLATE. [Concomitant]
     Active Substance: DOXAZOSIN MESYLATE
     Indication: PRODUCT USED FOR UNKNOWN INDICATION
     Dosage: UNK
     Route: 065
  3. REPOSITORY CORTICOTROPIN INJECTION [Suspect]
     Active Substance: CORTICOTROPIN
     Dosage: 10 UNITS, 0.12 ML, WEEKLY (TUESDAY)
     Route: 058
     Dates: start: 20190604, end: 2019
  4. WELLBUTRIN [Concomitant]
     Active Substance: BUPROPION HYDROCHLORIDE
     Indication: PRODUCT USED FOR UNKNOWN INDICATION
     Dosage: UNK (ER 24H)
     Route: 065
  5. REPOSITORY CORTICOTROPIN INJECTION [Suspect]
     Active Substance: CORTICOTROPIN
     Dosage: 10 UNITS EVERY OTHER SUNDAY
     Route: 058
     Dates: start: 2020, end: 2020
  6. TRAMADOL HCL [Concomitant]
     Active Substance: TRAMADOL HYDROCHLORIDE
     Indication: PRODUCT USED FOR UNKNOWN INDICATION
     Dosage: 50 MILLIGRAM, UNKNOWN
     Route: 065
  7. BUSPIRONE HCL [Concomitant]
     Active Substance: BUSPIRONE HYDROCHLORIDE
     Indication: PRODUCT USED FOR UNKNOWN INDICATION
     Dosage: UNK
     Route: 065
  8. REPOSITORY CORTICOTROPIN INJECTION [Suspect]
     Active Substance: CORTICOTROPIN
     Indication: NEPHROTIC SYNDROME
     Dosage: 40 UNITS/0.5 ML, 2 TIMES PER WEEK
     Route: 058
  9. REPOSITORY CORTICOTROPIN INJECTION [Suspect]
     Active Substance: CORTICOTROPIN
     Dosage: 20 UNITS/0.25 ML, 2 TIMES PER WEEK
     Route: 058
  10. REPOSITORY CORTICOTROPIN INJECTION [Suspect]
     Active Substance: CORTICOTROPIN
     Dosage: 10 UNITS, 0.12 ML, TWICE WEEKLY
     Route: 058
     Dates: start: 20190423, end: 2019
  11. REPOSITORY CORTICOTROPIN INJECTION [Suspect]
     Active Substance: CORTICOTROPIN
     Dosage: 7 UNITS EVERY OTHER WEEK
     Route: 058
     Dates: start: 202009
  12. NEURONTIN [Concomitant]
     Active Substance: GABAPENTIN
     Indication: PRODUCT USED FOR UNKNOWN INDICATION
     Dosage: UNK
     Route: 065
  13. CYCLOBENZAPRINE HCL [Concomitant]
     Active Substance: CYCLOBENZAPRINE HYDROCHLORIDE
     Indication: PRODUCT USED FOR UNKNOWN INDICATION
     Dosage: UNK
     Route: 065
  14. REPOSITORY CORTICOTROPIN INJECTION [Suspect]
     Active Substance: CORTICOTROPIN
     Dosage: 10 UNITS, WEEKLY (TUESDAY) AND ADD 10 UNITS EVERY OTHER WEEK
     Route: 058
     Dates: start: 201908
  15. REPOSITORY CORTICOTROPIN INJECTION [Suspect]
     Active Substance: CORTICOTROPIN
     Dosage: 10 UNITS EVERY OTHER WEEK
     Route: 058
  16. REPOSITORY CORTICOTROPIN INJECTION [Suspect]
     Active Substance: CORTICOTROPIN
     Dosage: 4 UNITS EVERY OTHER WEEK
     Route: 058
     Dates: start: 2020
  17. METOPROLOL TARTRATE. [Concomitant]
     Active Substance: METOPROLOL TARTRATE
     Indication: PRODUCT USED FOR UNKNOWN INDICATION
     Dosage: UNK
     Route: 065
  18. DILTIAZEM. [Concomitant]
     Active Substance: DILTIAZEM
     Indication: PRODUCT USED FOR UNKNOWN INDICATION
     Dosage: UNK, 24 HR ER (CD)
     Route: 065
  19. VITAMIN D2 [Concomitant]
     Active Substance: ERGOCALCIFEROL
     Indication: PRODUCT USED FOR UNKNOWN INDICATION
     Dosage: 50000 UNITS, UNK
     Route: 065
  20. CYMBALTA [Concomitant]
     Active Substance: DULOXETINE HYDROCHLORIDE
     Indication: PRODUCT USED FOR UNKNOWN INDICATION
     Dosage: UNK
     Route: 065
  21. REPOSITORY CORTICOTROPIN INJECTION [Suspect]
     Active Substance: CORTICOTROPIN
     Dosage: 10 UNITS ONCE WEEKLY
     Route: 058
     Dates: start: 20200106, end: 2020
  22. REPOSITORY CORTICOTROPIN INJECTION [Suspect]
     Active Substance: CORTICOTROPIN
     Dosage: 10 UNITS ONCE EVERY TWO WEEKS
     Route: 058
  23. REPOSITORY CORTICOTROPIN INJECTION [Suspect]
     Active Substance: CORTICOTROPIN
     Indication: FOCAL SEGMENTAL GLOMERULOSCLEROSIS
     Dosage: UNK
     Route: 058
     Dates: start: 20130921
  24. REPOSITORY CORTICOTROPIN INJECTION [Suspect]
     Active Substance: CORTICOTROPIN
     Dosage: 7 UNITS, UNK
     Route: 058
     Dates: start: 2020, end: 2020

REACTIONS (22)
  - Depression [Recovering/Resolving]
  - Treatment noncompliance [Unknown]
  - Dysmenorrhoea [Recovered/Resolved]
  - Fatigue [Unknown]
  - Lipoedema [Not Recovered/Not Resolved]
  - Feeling abnormal [Unknown]
  - Menstruation irregular [Recovered/Resolved]
  - Hypersomnia [Unknown]
  - Cushingoid [Not Recovered/Not Resolved]
  - Mood altered [Recovering/Resolving]
  - Polymenorrhoea [Not Recovered/Not Resolved]
  - Adrenal insufficiency [Unknown]
  - Weight increased [Not Recovered/Not Resolved]
  - Focal segmental glomerulosclerosis [Recovering/Resolving]
  - Anxiety [Recovering/Resolving]
  - Blood glucose decreased [Recovering/Resolving]
  - Disease progression [Recovering/Resolving]
  - Musculoskeletal discomfort [Unknown]
  - Abdominal discomfort [Recovering/Resolving]
  - Illness [Unknown]
  - Lymphoedema [Not Recovered/Not Resolved]
  - Gait disturbance [Not Recovered/Not Resolved]

NARRATIVE: CASE EVENT DATE: 2013
